FAERS Safety Report 6425969-5 (Version None)
Quarter: 2009Q4

REPORT INFORMATION
  Report Type: 
  Country: None (occurrence: None)
  Receive Date: 20091103
  Receipt Date: 20091103
  Transmission Date: 20100525
  Serious: Yes (Hospitalization)
  Sender: FDA-Public Use
  Company Number: None

PATIENT

DRUGS (2)
  1. LISINOPRIL [Suspect]
     Indication: HYPERTENSION
     Dosage: 20 MG BID PO
     Route: 048
     Dates: start: 20080918
  2. SPIRONOLACTONE [Suspect]
     Dosage: 25 MG EVERY DAY PO
     Route: 048
     Dates: start: 20071201, end: 20081106

REACTIONS (3)
  - BLOOD CREATININE INCREASED [None]
  - HYPERKALAEMIA [None]
  - MENTAL STATUS CHANGES [None]
